FAERS Safety Report 10357953 (Version 4)
Quarter: 2015Q4

REPORT INFORMATION
  Report Type: Spontaneous
  Country: US (occurrence: US)
  Receive Date: 20140801
  Receipt Date: 20151119
  Transmission Date: 20160304
  Serious: Yes (Hospitalization, Other)
  Sender: FDA-Public Use
  Company Number: US-PFIZER INC-2014212629

PATIENT
  Age: 26 Year
  Sex: Female
  Weight: 46.71 kg

DRUGS (8)
  1. DILANTIN [Suspect]
     Active Substance: PHENYTOIN
     Dosage: 100 MG, 3X/DAY
     Route: 048
     Dates: start: 19810629
  2. ASA [Concomitant]
     Active Substance: ASPIRIN
     Dosage: 81 MG, UNK
  3. DILANTIN [Suspect]
     Active Substance: PHENYTOIN
     Indication: GENERALISED TONIC-CLONIC SEIZURE
     Dosage: 200MG CAPSULES ONE IN THE MORNING AND TWO AT NIGHT
     Route: 048
     Dates: start: 1980
  4. MOGADON [Concomitant]
     Active Substance: NITRAZEPAM
     Indication: CONVULSION PROPHYLAXIS
     Dosage: 5 MG, 4X/DAY
     Route: 048
     Dates: start: 1986
  5. TEGRETOL [Suspect]
     Active Substance: CARBAMAZEPINE
     Indication: SEIZURE
     Dosage: 200 MG, EVERY 4 HRS
     Route: 048
     Dates: start: 1979
  6. CENTRUM [Concomitant]
     Active Substance: VITAMINS
     Dosage: 1 DF, 1X/DAY
     Route: 048
  7. DILANTIN [Suspect]
     Active Substance: PHENYTOIN
     Dosage: 100 MG, 2X/DAY
     Route: 048
  8. IRON [Concomitant]
     Active Substance: IRON
     Dosage: 325 MG, 3X/DAY
     Route: 048

REACTIONS (5)
  - Condition aggravated [Recovering/Resolving]
  - Generalised tonic-clonic seizure [Recovering/Resolving]
  - Cutaneous lupus erythematosus [Not Recovered/Not Resolved]
  - Systemic lupus erythematosus [Not Recovered/Not Resolved]
  - Bone disorder [Unknown]

NARRATIVE: CASE EVENT DATE: 19840413
